FAERS Safety Report 9366725 (Version 1)
Quarter: 2013Q2

REPORT INFORMATION
  Report Type: Spontaneous
  Country: DE (occurrence: None)
  Receive Date: 20130620
  Receipt Date: 20130620
  Transmission Date: 20140414
  Serious: Yes (Other)
  Sender: FDA-Public Use
  Company Number: 1749664

PATIENT
  Age: 53 Year
  Sex: Male

DRUGS (6)
  1. GEMCITABINE HYDROCHLORIDE [Suspect]
     Indication: DUCTAL ADENOCARCINOMA OF PANCREAS
     Dates: end: 20130325
  2. METOCLOPRAMIDE HYDROCHLORIDE [Concomitant]
  3. LORAZEPAM [Concomitant]
  4. DIHYDROCODONE BITARTRATE [Concomitant]
  5. HYDROCHLOROTHIAZIDE [Concomitant]
  6. SPIRONOLACTONE [Concomitant]

REACTIONS (5)
  - Abdominal pain [None]
  - Capillary leak syndrome [None]
  - Pericardial effusion [None]
  - Pleural effusion [None]
  - Vomiting [None]
